FAERS Safety Report 11806290 (Version 1)
Quarter: 2015Q4

REPORT INFORMATION
  Report Type: Spontaneous
  Country: CA (occurrence: CA)
  Receive Date: 20151207
  Receipt Date: 20151207
  Transmission Date: 20160305
  Serious: Yes (Other)
  Sender: FDA-Public Use
  Company Number: CA-TEVA-614141ACC

PATIENT
  Age: 66 Year
  Sex: Female
  Weight: 54.48 kg

DRUGS (2)
  1. GALANTAMINE ER [Suspect]
     Active Substance: GALANTAMINE
     Indication: DEMENTIA ALZHEIMER^S TYPE
     Dosage: 16 MILLIGRAM DAILY; CAPSULE, EXTENDED RELEASE
     Route: 048
  2. ESCITALOPRAM [Concomitant]
     Active Substance: ESCITALOPRAM OXALATE

REACTIONS (5)
  - Condition aggravated [Unknown]
  - Hallucination [Unknown]
  - Product substitution issue [Unknown]
  - Dementia Alzheimer^s type [Unknown]
  - Agitation [Unknown]
